FAERS Safety Report 7952416-4 (Version None)
Quarter: 2011Q4

REPORT INFORMATION
  Report Type: 
  Country: None (occurrence: None)
  Receive Date: 20111201
  Receipt Date: 20111122
  Transmission Date: 20120403
  Serious: Yes (Hospitalization)
  Sender: FDA-Public Use
  Company Number: CA-GLAXOSMITHKLINE-A0952556A

PATIENT
  Sex: Female

DRUGS (2)
  1. TYKERB [Suspect]
     Indication: BREAST CANCER METASTATIC
     Dosage: 1250MG PER DAY
     Route: 048
     Dates: start: 20110801
  2. XELODA [Suspect]
     Route: 065

REACTIONS (3)
  - MYOCARDIAL INFARCTION [None]
  - CARDIOTOXICITY [None]
  - CARDIAC FAILURE [None]
